FAERS Safety Report 9269956 (Version 1)
Quarter: 2013Q2

REPORT INFORMATION
  Report Type: Spontaneous
  Country: US (occurrence: US)
  Receive Date: 20130503
  Receipt Date: 20130503
  Transmission Date: 20140414
  Serious: No
  Sender: FDA-Public Use
  Company Number: US-009507513-1305USA000046

PATIENT
  Age: 57 Year
  Sex: Male
  Weight: 78.46 kg

DRUGS (3)
  1. PEGINTRON [Suspect]
     Indication: HEPATITIS C
     Dosage: REDIPEN 120 MICROGRAM PER 0.5 MILLILTRE
     Route: 058
  2. RIBAVIRIN [Suspect]
  3. CENTRUM (PERFOMANCE (ASIAN GINSENG (+) GINKGO (+) MINERALS (UNSPECIFIE [Concomitant]

REACTIONS (2)
  - Injection site erythema [Recovered/Resolved]
  - Nausea [Recovered/Resolved]
